FAERS Safety Report 14937556 (Version 2)
Quarter: 2018Q2

REPORT INFORMATION
  Report Type: Spontaneous
  Country: US (occurrence: US)
  Receive Date: 20180525
  Receipt Date: 20180616
  Transmission Date: 20180711
  Serious: No
  Sender: FDA-Public Use
  Company Number: US-JNJFOC-20180504167

PATIENT
  Age: 60 Year
  Sex: Female

DRUGS (3)
  1. MENS ROGAINE EXTRA STRENGTH [Suspect]
     Active Substance: MINOXIDIL
     Indication: PRODUCT USED FOR UNKNOWN INDICATION
     Route: 061
     Dates: start: 201710, end: 201805
  2. METFORMIN [Concomitant]
     Active Substance: METFORMIN HYDROCHLORIDE
     Indication: DIABETES MELLITUS
     Route: 065
     Dates: start: 2004
  3. MENS ROGAINE EXTRA STRENGTH [Suspect]
     Active Substance: MINOXIDIL
     Route: 061

REACTIONS (7)
  - Product use issue [Unknown]
  - Skin disorder [Unknown]
  - Seborrhoea [Recovered/Resolved]
  - Drug ineffective [Unknown]
  - Pruritus [Recovered/Resolved]
  - Intentional product misuse [Unknown]
  - Pain of skin [Unknown]

NARRATIVE: CASE EVENT DATE: 201710
